FAERS Safety Report 5602068-3 (Version None)
Quarter: 2008Q1

REPORT INFORMATION
  Report Type: 
  Country: None (occurrence: None)
  Receive Date: 20080122
  Receipt Date: 20080107
  Transmission Date: 20080703
  Serious: Yes (Hospitalization)
  Sender: FDA-Public Use
  Company Number: MEDI-0006325

PATIENT
  Age: 6 Month
  Sex: Female
  Weight: 8 kg

DRUGS (4)
  1. SYNAGIS [Suspect]
     Indication: ANTIVIRAL PROPHYLAXIS
     Dosage: 100 MG, INTRAMUSCULAR : 100 MG, INTRAMUSCULAR : 100 MG , INTRAMUSCULAR
     Route: 030
     Dates: start: 20071004, end: 20071203
  2. SYNAGIS [Suspect]
     Indication: ANTIVIRAL PROPHYLAXIS
     Dosage: 100 MG, INTRAMUSCULAR : 100 MG, INTRAMUSCULAR : 100 MG , INTRAMUSCULAR
     Route: 030
     Dates: start: 20071004
  3. SYNAGIS [Suspect]
     Indication: ANTIVIRAL PROPHYLAXIS
     Dosage: 100 MG, INTRAMUSCULAR : 100 MG, INTRAMUSCULAR : 100 MG , INTRAMUSCULAR
     Route: 030
     Dates: start: 20071101
  4. DIPHTHERIA-PURIFIED PERTUSSIS-TETANUS VACCINE (TETANUS VACCINE, DIPHTH [Suspect]
     Dosage: SUBCUTANEOUS
     Route: 058
     Dates: start: 20071203, end: 20071203

REACTIONS (3)
  - CRYING [None]
  - PAIN [None]
  - SYNCOPE [None]
